FAERS Safety Report 7996916-X (Version None)
Quarter: 2011Q4

REPORT INFORMATION
  Report Type: 
  Country: None (occurrence: None)
  Receive Date: 20111221
  Receipt Date: 20111208
  Transmission Date: 20120403
  Serious: Yes (Other)
  Sender: FDA-Public Use
  Company Number: US-RANBAXY-2011RR-51221

PATIENT
  Sex: Male

DRUGS (14)
  1. NASONEX [Suspect]
     Indication: PRODUCT USED FOR UNKNOWN INDICATION
     Dosage: 50 UG/AC
     Route: 065
     Dates: start: 20051105, end: 20090408
  2. LEVAQUIN [Suspect]
     Indication: INFECTION
     Dosage: 500 MG/DAY
     Route: 048
     Dates: start: 20041124
  3. LEVAQUIN [Suspect]
     Dosage: 500 MG/ DAY
     Route: 048
     Dates: start: 20080416
  4. ADVAIR DISKUS 100/50 [Suspect]
     Indication: PRODUCT USED FOR UNKNOWN INDICATION
     Dosage: 250/50
     Route: 055
     Dates: start: 20050419, end: 20090419
  5. MEDROL [Suspect]
     Indication: PRODUCT USED FOR UNKNOWN INDICATION
     Dosage: UNK
     Route: 065
     Dates: start: 20081001
  6. METHYLPREDNISOLONE [Suspect]
     Indication: PRODUCT USED FOR UNKNOWN INDICATION
     Route: 065
  7. LEVAQUIN [Suspect]
     Dosage: 500 MG/DAY
     Route: 048
     Dates: start: 20080416
  8. CIPROFLOXACIN [Suspect]
     Indication: INFECTION
     Route: 065
  9. PREDNISOLONE [Suspect]
     Indication: PRODUCT USED FOR UNKNOWN INDICATION
     Dosage: 10-20 MG
     Route: 065
     Dates: start: 20040924, end: 20090112
  10. LEVAQUIN [Suspect]
     Indication: SINUSITIS
     Dosage: 500 MG/DAY
     Route: 048
     Dates: start: 20040924
  11. LEVAQUIN [Suspect]
     Dosage: 500 MG/DAY
     Route: 048
     Dates: start: 20080430
  12. LEVAQUIN [Suspect]
     Dosage: 500 MG/DAY
     Route: 048
     Dates: start: 20041129
  13. LEVAQUIN [Suspect]
     Dosage: 500 MG/ DAY
     Route: 048
     Dates: start: 20050131
  14. ERYTHROMYCIN [Concomitant]
     Indication: PRODUCT USED FOR UNKNOWN INDICATION
     Route: 065

REACTIONS (3)
  - ROTATOR CUFF SYNDROME [None]
  - TENDON RUPTURE [None]
  - EPICONDYLITIS [None]
